FAERS Safety Report 4579753-8 (Version None)
Quarter: 2005Q1

REPORT INFORMATION
  Report Type: 
  Country: None (occurrence: None)
  Receive Date: 20050210
  Receipt Date: 20050128
  Transmission Date: 20050727
  Serious: No
  Sender: FDA-Public Use
  Company Number: 2005GB00211

PATIENT
  Age: 82 Year
  Sex: Female

DRUGS (1)
  1. SEROQUEL [Suspect]
     Indication: PARANOIA
     Dosage: 200 MG BID PO
     Route: 048
     Dates: start: 20041001

REACTIONS (2)
  - LEFT VENTRICULAR FAILURE [None]
  - PULMONARY OEDEMA [None]
